FAERS Safety Report 24652021 (Version 2)
Quarter: 2024Q4

REPORT INFORMATION
  Report Type: Report from Study
  Country: US (occurrence: US)
  Receive Date: 20241122
  Receipt Date: 20241122
  Transmission Date: 20250115
  Serious: Yes (Life-Threatening, Hospitalization)
  Sender: MYLAN
  Company Number: US-MYLANLABS-2024M1103530

PATIENT
  Age: 5 Year
  Sex: Female

DRUGS (6)
  1. DIAZEPAM [Suspect]
     Active Substance: DIAZEPAM
     Indication: Status epilepticus
     Dosage: UNK
     Route: 054
  2. LORAZEPAM [Suspect]
     Active Substance: LORAZEPAM
     Indication: Status epilepticus
     Dosage: 0.1 MILLIGRAM/KILOGRAM, BID (TWICE)
     Route: 042
  3. BRIVARACETAM [Suspect]
     Active Substance: BRIVARACETAM
     Indication: Status epilepticus
     Dosage: 5 MILLIGRAM/KILOGRAM
     Route: 042
  4. MIDAZOLAM [Suspect]
     Active Substance: MIDAZOLAM
     Indication: Status epilepticus
     Dosage: UNK, INFUSION
     Route: 042
  5. VALPROIC ACID [Concomitant]
     Active Substance: VALPROIC ACID
     Indication: Status epilepticus
     Dosage: UNK
     Route: 065
  6. ZONISAMIDE [Concomitant]
     Active Substance: ZONISAMIDE
     Indication: Status epilepticus
     Dosage: UNK
     Route: 065

REACTIONS (1)
  - Drug ineffective [Unknown]
